FAERS Safety Report 5462904-0 (Version None)
Quarter: 2007Q3

REPORT INFORMATION
  Report Type: 
  Country: None (occurrence: None)
  Receive Date: 20070920
  Receipt Date: 20070620
  Transmission Date: 20080115
  Serious: No
  Sender: FDA-Public Use
  Company Number: US-BAUSCH-2007BL002053

PATIENT
  Age: 23 Year
  Sex: Male

DRUGS (3)
  1. NEOMYCIN AND POLYMYXIN B SULFATES AND HYDROCORTISONE OTIC SUSPENSION [Suspect]
     Indication: EAR INFECTION
     Route: 001
     Dates: start: 20070608, end: 20070616
  2. NEOMYCIN AND POLYMYXIN B SULFATES AND HYDROCORTISONE OTIC SUSPENSION [Suspect]
     Route: 001
     Dates: start: 20070617, end: 20070619
  3. ^UNSPECIFIED ORAL ANTIBIOTIC^ [Concomitant]
     Indication: RENAL DISORDER
     Route: 048

REACTIONS (5)
  - DRUG HYPERSENSITIVITY [None]
  - EAR DISCOMFORT [None]
  - EAR PAIN [None]
  - EAR PRURITUS [None]
  - RASH [None]
